FAERS Safety Report 9294106 (Version 2)
Quarter: 2014Q1

REPORT INFORMATION
  Report Type: Spontaneous
  Country: US (occurrence: None)
  Receive Date: 20121226
  Receipt Date: 20140109
  Transmission Date: 20141002
  Serious: Yes (Other)
  Sender: FDA-Public Use
  Company Number: 361908

PATIENT
  Age: 66 Year
  Sex: Female
  Weight: 74.8 kg

DRUGS (2)
  1. LEVEMIR [Suspect]
     Indication: DIABETES MELLITUS
     Route: 058
  2. NOVOLOG (INSULIN ASPART) [Concomitant]

REACTIONS (2)
  - Device malfunction [None]
  - Blood glucose decreased [None]
